FAERS Safety Report 4364656-4 (Version None)
Quarter: 2004Q2

REPORT INFORMATION
  Report Type: 
  Country: None (occurrence: None)
  Receive Date: 20040521
  Receipt Date: 20040430
  Transmission Date: 20050107
  Serious: Yes (Disabling, Other)
  Sender: FDA-Public Use
  Company Number: USA040466379

PATIENT
  Sex: Female

DRUGS (1)
  1. INSULIN [Suspect]

REACTIONS (1)
  - BLINDNESS [None]
